FAERS Safety Report 4399090-4 (Version None)
Quarter: 2004Q2

REPORT INFORMATION
  Report Type: 
  Country: None (occurrence: None)
  Receive Date: 20040621
  Receipt Date: 20040326
  Transmission Date: 20050107
  Serious: Yes (Death)
  Sender: FDA-Public Use
  Company Number: KII-1999-0000533

PATIENT
  Sex: Male

DRUGS (4)
  1. OXYCONTIN [Suspect]
     Dosage: 180 MG, Q12H
  2. FLEXERIL [Suspect]
  3. EFFEXOR [Suspect]
  4. BENADRYL [Suspect]

REACTIONS (1)
  - MULTIPLE DRUG OVERDOSE [None]
